FAERS Safety Report 16026982 (Version 1)
Quarter: 2019Q1

REPORT INFORMATION
  Report Type: Spontaneous
  Country: US (occurrence: US)
  Receive Date: 20190303
  Receipt Date: 20190303
  Transmission Date: 20190418
  Serious: No
  Sender: FDA-Public Use
  Company Number: US-IMPAX LABORATORIES, LLC-2018-IPXL-00362

PATIENT
  Age: 75 Year
  Sex: Female

DRUGS (4)
  1. RYTARY [Suspect]
     Active Substance: CARBIDOPA\LEVODOPA
     Dosage: 36.25/145MG, 3 CAPSULES, EVERY 8HR
     Route: 048
  2. RYTARY [Suspect]
     Active Substance: CARBIDOPA\LEVODOPA
     Dosage: 48.75/195MG, UNK
     Route: 048
  3. REQUIP [Concomitant]
     Active Substance: ROPINIROLE HYDROCHLORIDE
     Indication: PRODUCT USED FOR UNKNOWN INDICATION
     Dosage: UNK
     Route: 065
  4. RYTARY [Suspect]
     Active Substance: CARBIDOPA\LEVODOPA
     Indication: PARKINSON^S DISEASE
     Dosage: 36.25/145 MG 3 CAPSULES, 3 TIMES DAILY
     Route: 048
     Dates: start: 2017

REACTIONS (4)
  - Therapeutic response shortened [Unknown]
  - Freezing phenomenon [Not Recovered/Not Resolved]
  - Feeling abnormal [Unknown]
  - Drug effect incomplete [Unknown]
